FAERS Safety Report 21312923 (Version 1)
Quarter: 2022Q3

REPORT INFORMATION
  Report Type: Spontaneous
  Country: None (occurrence: CA)
  Receive Date: 20220909
  Receipt Date: 20220909
  Transmission Date: 20221027
  Serious: Yes (Hospitalization, Other)
  Sender: FDA-Public Use
  Company Number: CA-B.Braun Medical Inc.-2132712

PATIENT
  Age: 71 Year
  Sex: Female

DRUGS (7)
  1. DEXTROSE MONOHYDRATE\THEOPHYLLINE\THEOPHYLLINE ANHYDROUS [Suspect]
     Active Substance: DEXTROSE MONOHYDRATE\THEOPHYLLINE\THEOPHYLLINE ANHYDROUS
  2. MEPOLIZUMAB [Suspect]
     Active Substance: MEPOLIZUMAB
  3. BUDESONIDE [Concomitant]
     Active Substance: BUDESONIDE
  4. BUDESONIDE\FORMOTEROL FUMARATE [Suspect]
     Active Substance: BUDESONIDE\FORMOTEROL FUMARATE
  5. PREDNISONE [Suspect]
     Active Substance: PREDNISONE
  6. ALBUTEROL [Suspect]
     Active Substance: ALBUTEROL
  7. TIOTROPIUM BROMIDE MONOHYDRATE [Suspect]
     Active Substance: TIOTROPIUM BROMIDE MONOHYDRATE

REACTIONS (6)
  - Drug hypersensitivity [Unknown]
  - Gastric disorder [Unknown]
  - Gastrointestinal ischaemia [Unknown]
  - Inappropriate schedule of product administration [Unknown]
  - Intestinal ischaemia [Unknown]
  - Nasopharyngitis [None]
